FAERS Safety Report 20382493 (Version 1)
Quarter: 2022Q1

REPORT INFORMATION
  Report Type: Spontaneous
  Country: US (occurrence: US)
  Receive Date: 20220127
  Receipt Date: 20220127
  Transmission Date: 20220423
  Serious: No
  Sender: FDA-Public Use
  Company Number: US-PCCINC-2021-PEL-000184

PATIENT

DRUGS (8)
  1. GABLOFEN [Suspect]
     Active Substance: BACLOFEN
     Indication: Product used for unknown indication
     Dosage: 416 MICROGRAM PER DAY
     Route: 037
  2. GABLOFEN [Suspect]
     Active Substance: BACLOFEN
     Dosage: 436 MICROGRAM PER DAY
     Route: 037
     Dates: start: 20170522
  3. GABLOFEN [Suspect]
     Active Substance: BACLOFEN
     Dosage: 491 MICROGRAM PER DAY
     Route: 037
     Dates: start: 20180330
  4. GABLOFEN [Suspect]
     Active Substance: BACLOFEN
     Dosage: 568 MICROGRAM PER DAY
     Route: 037
  5. GABLOFEN [Suspect]
     Active Substance: BACLOFEN
     Dosage: 598 MICROGRAM PER DAY
     Route: 037
     Dates: start: 20190415
  6. GABLOFEN [Suspect]
     Active Substance: BACLOFEN
     Dosage: 681.5 MICROGRAM PER DAY
     Route: 037
  7. GABLOFEN [Suspect]
     Active Substance: BACLOFEN
     Dosage: 200 MICROGRAM PER DAY
     Route: 037
  8. BACLOFEN [Concomitant]
     Active Substance: BACLOFEN
     Indication: Product used for unknown indication
     Dosage: UNK
     Route: 048

REACTIONS (2)
  - Muscle tightness [Recovered/Resolved]
  - Device breakage [Recovered/Resolved]

NARRATIVE: CASE EVENT DATE: 20201222
